FAERS Safety Report 17628995 (Version 1)
Quarter: 2020Q2

REPORT INFORMATION
  Report Type: Spontaneous
  Country: US (occurrence: US)
  Receive Date: 20200406
  Receipt Date: 20200406
  Transmission Date: 20200713
  Serious: No
  Sender: FDA-Public Use
  Company Number: US-ALLERGAN-1907847US

PATIENT

DRUGS (4)
  1. CANASA [Suspect]
     Active Substance: MESALAMINE
     Indication: PRODUCT USED FOR UNKNOWN INDICATION
     Dosage: UNK
     Route: 065
     Dates: start: 201211, end: 201709
  2. ROWASA [Concomitant]
     Active Substance: MESALAMINE
     Dosage: UNK
     Dates: start: 201709, end: 201803
  3. METHOTREXATE. [Concomitant]
     Active Substance: METHOTREXATE
     Dosage: UNK
     Dates: start: 201406, end: 201703
  4. REMICADE [Suspect]
     Active Substance: INFLIXIMAB
     Indication: PRODUCT USED FOR UNKNOWN INDICATION
     Dosage: UNK
     Route: 065
     Dates: start: 201406, end: 201406

REACTIONS (2)
  - Hypersensitivity [Unknown]
  - Drug ineffective [Unknown]
